FAERS Safety Report 5149261-4 (Version None)
Quarter: 2006Q4

REPORT INFORMATION
  Report Type: 
  Country: None (occurrence: None)
  Receive Date: 20061113
  Receipt Date: 20051011
  Transmission Date: 20070319
  Serious: No
  Sender: FDA-Public Use
  Company Number: 423368

PATIENT
  Sex: Female

DRUGS (1)
  1. COREG [Suspect]
     Indication: HYPERTENSION
     Route: 048

REACTIONS (4)
  - DIZZINESS [None]
  - HEADACHE [None]
  - NERVOUSNESS [None]
  - VISION BLURRED [None]
